FAERS Safety Report 23859716 (Version 4)
Quarter: 2025Q2

REPORT INFORMATION
  Report Type: Report from Study
  Country: CA (occurrence: CA)
  Receive Date: 20240515
  Receipt Date: 20250623
  Transmission Date: 20250716
  Serious: Yes (Other)
  Sender: TAKEDA
  Company Number: CA-TAKEDA-2022TUS096083

PATIENT
  Age: 59 Year
  Sex: Female

DRUGS (14)
  1. VEDOLIZUMAB [Suspect]
     Active Substance: VEDOLIZUMAB
     Indication: Crohn^s disease
  2. VEDOLIZUMAB [Suspect]
     Active Substance: VEDOLIZUMAB
  3. VEDOLIZUMAB [Suspect]
     Active Substance: VEDOLIZUMAB
  4. VEDOLIZUMAB [Suspect]
     Active Substance: VEDOLIZUMAB
  5. VEDOLIZUMAB [Suspect]
     Active Substance: VEDOLIZUMAB
  6. VEDOLIZUMAB [Suspect]
     Active Substance: VEDOLIZUMAB
  7. VEDOLIZUMAB [Suspect]
     Active Substance: VEDOLIZUMAB
  8. VEDOLIZUMAB [Suspect]
     Active Substance: VEDOLIZUMAB
  9. Metadol [Concomitant]
  10. LANSOPRAZOLE [Concomitant]
     Active Substance: LANSOPRAZOLE
  11. GABAPENTIN [Concomitant]
     Active Substance: GABAPENTIN
  12. WELLBUTRIN [Concomitant]
     Active Substance: BUPROPION HYDROCHLORIDE
  13. B12 [Concomitant]
  14. OZEMPIC [Concomitant]
     Active Substance: SEMAGLUTIDE

REACTIONS (10)
  - Feeling of body temperature change [Not Recovered/Not Resolved]
  - Body temperature increased [Not Recovered/Not Resolved]
  - Abdominal pain [Not Recovered/Not Resolved]
  - Blood pressure increased [Not Recovered/Not Resolved]
  - Constipation [Not Recovered/Not Resolved]
  - Product dose omission issue [Not Recovered/Not Resolved]
  - Gastrointestinal pain [Unknown]
  - Abdominal pain upper [Unknown]
  - Diarrhoea [Unknown]
  - Heart rate increased [Unknown]

NARRATIVE: CASE EVENT DATE: 20240507
